FAERS Safety Report 24287264 (Version 2)
Quarter: 2024Q3

REPORT INFORMATION
  Report Type: Spontaneous
  Country: US (occurrence: US)
  Receive Date: 20240905
  Receipt Date: 20240926
  Transmission Date: 20241017
  Serious: No
  Sender: PFIZER
  Company Number: US-PFIZER INC-202400249280

PATIENT
  Age: 75 Year
  Sex: Male
  Weight: 73.03 kg

DRUGS (26)
  1. PAXLOVID [Suspect]
     Active Substance: NIRMATRELVIR\RITONAVIR
     Indication: COVID-19 treatment
     Dosage: [NIRMATRELVIR 150 MG]/[RITONAVIR 100 MG]; 2X/DAY
     Route: 048
     Dates: start: 20240903, end: 20240909
  2. ACYCLOVIR [Concomitant]
     Active Substance: ACYCLOVIR
     Dosage: 500 MILLIGRAMS IN THE MORNING
  3. ALLOPURINOL [Concomitant]
     Active Substance: ALLOPURINOL
     Indication: Gout
     Dosage: 200 MILLIGRAMS IN THE MORNING/ONSET: 20 PLUS YEARS
  4. ARANESP [Concomitant]
     Active Substance: DARBEPOETIN ALFA
     Dosage: EVERY TWO TO THREE WEEKS, LAST DOSE ON 14AUG
     Route: 058
  5. COLESTIPOL HYDROCHLORIDE [Concomitant]
     Active Substance: COLESTIPOL HYDROCHLORIDE
     Indication: Bile acid malabsorption
     Dosage: 2 GRAMS; TWICE A DAY
  6. COLESTIPOL HYDROCHLORIDE [Concomitant]
     Active Substance: COLESTIPOL HYDROCHLORIDE
     Indication: Irritable bowel syndrome
     Dosage: 2 G, 2-3 DAILY (ONSET: 4 MONTHS)
     Dates: start: 2024
  7. EZETIMIBE [Concomitant]
     Active Substance: EZETIMIBE
     Indication: Blood cholesterol increased
     Dosage: 5 G, 1X/DAY (IN THE MORNING)
  8. EZETIMIBE [Concomitant]
     Active Substance: EZETIMIBE
     Dosage: 5 MILLIGRAMS IN THE MORNING (ONSET: 18 MONTHS)
     Dates: start: 2023
  9. FEXOFENADINE [Concomitant]
     Active Substance: FEXOFENADINE HYDROCHLORIDE
     Dosage: 120 MILLIGRAMS; ONCE A DAY
  10. FLOMAX [Concomitant]
     Active Substance: TAMSULOSIN HYDROCHLORIDE
     Indication: Urinary hesitation
     Dosage: 0.4 MG, 1X/DAY (NIGHT/ONSET: 3 YEARS)
     Dates: start: 2021
  11. IRBESARTAN [Concomitant]
     Active Substance: IRBESARTAN
     Indication: Hypertension
     Dosage: 75 MG, 1X/DAY ( IN THE MORNING)
     Dates: start: 2021
  12. IVIGLOB EX [Concomitant]
     Active Substance: HUMAN IMMUNOGLOBULIN G
     Dosage: 30 GRAMS MONTHLY, LAST DOSE 14AUG
  13. LEVOTHYROXINE [Concomitant]
     Active Substance: LEVOTHYROXINE\LEVOTHYROXINE SODIUM
     Indication: Hypothyroidism
     Dosage: 150 MICROGRAMS IN THE MORNING
  14. LEVOTHYROXINE [Concomitant]
     Active Substance: LEVOTHYROXINE\LEVOTHYROXINE SODIUM
     Dosage: 100 MG, 1X/DAY (ONSET: 30 PLUS YEARS)
  15. LOPERAMIDE [Concomitant]
     Active Substance: LOPERAMIDE
     Indication: Diarrhoea
     Dosage: 2 MILLIGRAMS, TWICE A DAY
  16. LOPERAMIDE [Concomitant]
     Active Substance: LOPERAMIDE
     Indication: Irritable bowel syndrome
     Dosage: 2 MG, 2-3 DAILY/ONSET: 2-3 YEARS
  17. PLAVIX [Concomitant]
     Active Substance: CLOPIDOGREL BISULFATE
     Dosage: 75 MILLIGRAMS IN THE MORNING
  18. PROTONIX [Concomitant]
     Active Substance: PANTOPRAZOLE SODIUM
     Dosage: 40 MILLIGRAMS, ONCE A DAY
  19. ROSUVASTATIN [Concomitant]
     Active Substance: ROSUVASTATIN\ROSUVASTATIN CALCIUM
     Indication: Blood cholesterol increased
     Dosage: 5 MG, 1X/DAY (ONSET: 30 YEARS)
  20. TECLISTAMAB [Concomitant]
     Active Substance: TECLISTAMAB
     Dosage: 1.5 MILLIGRAM PER KILOGRAM, LAST DOSE ON 14AUG
  21. TESTOSTERONE [Concomitant]
     Active Substance: TESTOSTERONE
     Dosage: 1.62 PERCENT TOPICALLY ONCE A DAY
     Route: 061
  22. SULFAMETHOXAZOLE\TRIMETHOPRIM [Concomitant]
     Active Substance: SULFAMETHOXAZOLE\TRIMETHOPRIM
     Indication: Prophylaxis
     Dosage: UNK, 1X/DAY (DOUBLE STRENGTH, ONE TAB MONDAY, WEDNESDAY AND FRIDAY)
  23. VITAMIN D3 [Concomitant]
     Active Substance: CHOLECALCIFEROL
     Dosage: 2000 INTERNATIONAL UNITS ONCE A DAY
  24. CLOPIDOGREL [Concomitant]
     Active Substance: CLOPIDOGREL BISULFATE
     Indication: Vascular stent thrombosis
     Dosage: 75 MG, 1X/DAY (ONSET: 18 MONTHS)
     Dates: start: 2023
  25. PANTOPRAZOLE [Concomitant]
     Active Substance: PANTOPRAZOLE
     Indication: Gastrooesophageal reflux disease
     Dosage: 40 MG, 1X/DAY/ONSET: 2 PLUS YEARS
  26. VALACYCLOVIR [Concomitant]
     Active Substance: VALACYCLOVIR HYDROCHLORIDE
     Dosage: QD 1 TAB VZV PROPHYLAXIS

REACTIONS (2)
  - Dysgeusia [Unknown]
  - Inappropriate schedule of product administration [Unknown]

NARRATIVE: CASE EVENT DATE: 20240901
